FAERS Safety Report 9134745 (Version 1)
Quarter: 2013Q1

REPORT INFORMATION
  Report Type: Spontaneous
  Country: US (occurrence: None)
  Receive Date: 20130205
  Receipt Date: 20130205
  Transmission Date: 20140127
  Serious: Yes (Other)
  Sender: FDA-Public Use
  Company Number: 1301-155

PATIENT
  Age: 82 Year
  Sex: Female

DRUGS (1)
  1. EYLEA (AFLIBERCEPT)(INJECTION)(AFLIBERCEPT) [Suspect]
     Indication: AGE-RELATED MACULAR DEGENERATION
     Dosage: 1 IN 4 WK,  INTRAVITREAL
     Dates: start: 20120111

REACTIONS (2)
  - Retinal haemorrhage [None]
  - Visual acuity reduced [None]
